FAERS Safety Report 4471883-4 (Version None)
Quarter: 2004Q4

REPORT INFORMATION
  Report Type: 
  Country: None (occurrence: None)
  Receive Date: 20041007
  Receipt Date: 20040928
  Transmission Date: 20050328
  Serious: Yes (Hospitalization)
  Sender: FDA-Public Use
  Company Number: 2004-09-1798

PATIENT
  Age: 90 Year
  Sex: Male

DRUGS (2)
  1. FLUTAMIDE [Suspect]
     Indication: PROSTATE CANCER
     Dosage: 375 MG ORAL
     Route: 048
     Dates: start: 20040805
  2. MELOXICAM [Concomitant]

REACTIONS (1)
  - GASTRIC ULCER [None]
